FAERS Safety Report 7007378-3 (Version None)
Quarter: 2010Q3

REPORT INFORMATION
  Report Type: 
  Country: None (occurrence: None)
  Receive Date: 20100922
  Receipt Date: 20100910
  Transmission Date: 20110219
  Serious: Yes (Other)
  Sender: FDA-Public Use
  Company Number: DK-PFIZER INC-2010095814

PATIENT
  Age: 57 Year
  Sex: Male
  Weight: 113 kg

DRUGS (2)
  1. LYRICA [Suspect]
     Indication: PAIN
     Dosage: 1200 MG, DAILY
     Dates: start: 20100401
  2. GABAPENTIN [Concomitant]
     Dosage: UNK

REACTIONS (3)
  - DRUG ABUSE [None]
  - EUPHORIC MOOD [None]
  - WITHDRAWAL SYNDROME [None]
